FAERS Safety Report 6233998-X (Version None)
Quarter: 2009Q2

REPORT INFORMATION
  Report Type: 
  Country: None (occurrence: None)
  Receive Date: 20090616
  Receipt Date: 20090616
  Transmission Date: 20091009
  Serious: No
  Sender: FDA-Public Use
  Company Number: None

PATIENT
  Age: 66 Year
  Sex: Female
  Weight: 58.9676 kg

DRUGS (1)
  1. BENZONATATE [Suspect]
     Indication: COUGH
     Dates: start: 20090512, end: 20090517

REACTIONS (1)
  - HAEMORRHOIDS [None]
